FAERS Safety Report 18901533 (Version 1)
Quarter: 2021Q1

REPORT INFORMATION
  Report Type: Spontaneous
  Country: MX (occurrence: MX)
  Receive Date: 20210216
  Receipt Date: 20210216
  Transmission Date: 20210420
  Serious: Yes (Other)
  Sender: FDA-Public Use
  Company Number: MX-TEIKOKU PHARMA USA-TPU2021-00254

PATIENT
  Age: 76 Year
  Sex: Female

DRUGS (1)
  1. VERSATIS [Suspect]
     Active Substance: LIDOCAINE
     Indication: PAIN
     Route: 061

REACTIONS (4)
  - Delirium [Recovering/Resolving]
  - Dysarthria [Recovering/Resolving]
  - Off label use [Recovered/Resolved]
  - Disorientation [Recovering/Resolving]
